FAERS Safety Report 5379887-4 (Version None)
Quarter: 2007Q3

REPORT INFORMATION
  Report Type: 
  Country: None (occurrence: None)
  Receive Date: 20070706
  Receipt Date: 20070704
  Transmission Date: 20080115
  Serious: Yes (Death, Other)
  Sender: FDA-Public Use
  Company Number: PHBS2007JP08573

PATIENT
  Age: 12 Year
  Sex: Male

DRUGS (6)
  1. PREDNISOLONE [Suspect]
     Indication: CORD BLOOD TRANSPLANT THERAPY
     Dosage: 1 MG/KG/DAY
  2. PREDNISOLONE [Suspect]
     Dosage: 0.5 MG/KG/DAY
     Route: 065
  3. SANDIMMUNE [Suspect]
     Indication: CORD BLOOD TRANSPLANT THERAPY
     Route: 042
  4. CYCLOPHOSPHAMIDE [Concomitant]
     Dosage: 120 MG/KG
  5. ETOPOSIDE [Concomitant]
     Dosage: 35 MG/KG FOR 36 HOURS
     Route: 042
  6. TACROLIMUS [Suspect]
     Indication: CORD BLOOD TRANSPLANT THERAPY
     Dosage: UNK, UNK
     Route: 042
     Dates: start: 20010307, end: 20010404

REACTIONS (7)
  - CONVULSION [None]
  - DEPRESSED LEVEL OF CONSCIOUSNESS [None]
  - GRAFT VERSUS HOST DISEASE [None]
  - NEUROLOGICAL SYMPTOM [None]
  - PAIN IN EXTREMITY [None]
  - RENAL IMPAIRMENT [None]
  - THROMBOTIC MICROANGIOPATHY [None]
